FAERS Safety Report 20366585 (Version 1)
Quarter: 2022Q1

REPORT INFORMATION
  Report Type: Other
  Country: US (occurrence: US)
  Receive Date: 20220123
  Receipt Date: 20220123
  Transmission Date: 20220423
  Serious: No
  Sender: FDA-Public Use
  Company Number: US-BIOGEN-2021BI01039929

PATIENT
  Age: 38 Year
  Sex: Female

DRUGS (11)
  1. AMPYRA [Suspect]
     Active Substance: DALFAMPRIDINE
     Indication: Multiple sclerosis
     Dosage: 10 MILLIGRAM, BID
     Route: 048
     Dates: start: 20210407
  2. TECFIDERA [Suspect]
     Active Substance: DIMETHYL FUMARATE
     Indication: Multiple sclerosis
     Dosage: 120 MILLIGRAM, QD
     Route: 065
     Dates: start: 20170608, end: 20170621
  3. TECFIDERA [Suspect]
     Active Substance: DIMETHYL FUMARATE
     Dosage: 240 MILLIGRAM, QD
     Route: 065
     Dates: start: 20170622, end: 20170704
  4. TECFIDERA [Suspect]
     Active Substance: DIMETHYL FUMARATE
     Dosage: 240 MILLIGRAM, BID
     Route: 065
     Dates: start: 20170705
  5. SPIRONOLACTONE [Concomitant]
     Active Substance: SPIRONOLACTONE
     Indication: Hypertension
     Dosage: 2.5 MILLIGRAM
     Route: 048
  6. LISINOPRIL [Concomitant]
     Active Substance: LISINOPRIL
     Indication: Hypertension
     Dosage: 2.5 MILLIGRAM, QD
     Route: 048
  7. DICLOFENAC [Concomitant]
     Active Substance: DICLOFENAC
     Indication: Pain
     Dosage: 50 MILLIGRAM, BID
     Route: 048
  8. GABAPENTIN [Concomitant]
     Active Substance: GABAPENTIN
     Indication: Pain
     Route: 048
     Dates: start: 20170118
  9. NAPROXEN [Concomitant]
     Active Substance: NAPROXEN
     Indication: Lumbar radiculopathy
     Route: 048
     Dates: start: 20210407
  10. COLACE [Concomitant]
     Active Substance: DOCUSATE SODIUM
     Indication: Lumbar radiculopathy
     Dosage: 250 MILLIGRAM, QD
     Route: 048
     Dates: start: 20210407
  11. LIORESAL [Concomitant]
     Active Substance: BACLOFEN
     Indication: Lumbar radiculopathy
     Dosage: 10 MILLIGRAM, TID
     Route: 048
     Dates: start: 20210407

REACTIONS (2)
  - Pain [Not Recovered/Not Resolved]
  - Musculoskeletal stiffness [Not Recovered/Not Resolved]

NARRATIVE: CASE EVENT DATE: 20210407
